FAERS Safety Report 25327091 (Version 1)
Quarter: 2025Q2

REPORT INFORMATION
  Report Type: Report from Study
  Country: IN (occurrence: IN)
  Receive Date: 20250517
  Receipt Date: 20250517
  Transmission Date: 20250716
  Serious: Yes (Other)
  Sender: ALEXION PHARMACEUTICALS
  Company Number: IN-AstraZeneca-CH-00870610A

PATIENT
  Age: 33 Year
  Weight: 59 kg

DRUGS (3)
  1. OLAPARIB [Suspect]
     Active Substance: OLAPARIB
  2. EVEROLIMUS [Concomitant]
     Active Substance: EVEROLIMUS
     Route: 065
  3. LENVATINIB [Concomitant]
     Active Substance: LENVATINIB
     Route: 065

REACTIONS (8)
  - Insomnia [Unknown]
  - Cough [Unknown]
  - Immunodeficiency [Unknown]
  - Weight decreased [Unknown]
  - Asthenia [Unknown]
  - Negative thoughts [Unknown]
  - Therapy interrupted [Unknown]
  - Psychiatric symptom [Unknown]
